FAERS Safety Report 7271928-2 (Version None)
Quarter: 2011Q1

REPORT INFORMATION
  Report Type: 
  Country: None (occurrence: None)
  Receive Date: 20110203
  Receipt Date: 20110131
  Transmission Date: 20110831
  Serious: Yes (Hospitalization, Other)
  Sender: FDA-Public Use
  Company Number: US-JNJFOC-20100900924

PATIENT
  Age: 70 Year
  Sex: Female

DRUGS (6)
  1. AMRIX [Suspect]
     Indication: ILL-DEFINED DISORDER
     Route: 065
  2. TRAMADOL HYDROCHLORIDE [Suspect]
     Indication: ILL-DEFINED DISORDER
     Route: 065
  3. DIPHENHYDRAMINE [Suspect]
     Indication: ILL-DEFINED DISORDER
     Route: 065
  4. ALPRAZOLAM [Suspect]
     Indication: ILL-DEFINED DISORDER
     Route: 065
  5. DIPHENHYDRAMINE [Suspect]
     Route: 065
  6. OXYCODONE HCL [Suspect]
     Indication: ILL-DEFINED DISORDER
     Route: 065

REACTIONS (3)
  - AGGRESSION [None]
  - INJURY [None]
  - ROAD TRAFFIC ACCIDENT [None]
